FAERS Safety Report 4297807-0 (Version None)
Quarter: 2004Q1

REPORT INFORMATION
  Report Type: 
  Country: None (occurrence: None)
  Receive Date: 20040126
  Receipt Date: 20031106
  Transmission Date: 20041129
  Serious: No
  Sender: FDA-Public Use
  Company Number: USA031151950

PATIENT
  Age: 30 Year
  Sex: Male
  Weight: 77 kg

DRUGS (1)
  1. STRATTERA [Suspect]
     Indication: ATTENTION DEFICIT/HYPERACTIVITY DISORDER
     Dosage: 40 MG/ 2 DAY

REACTIONS (1)
  - TESTICULAR PAIN [None]
